FAERS Safety Report 17880180 (Version 3)
Quarter: 2020Q4

REPORT INFORMATION
  Report Type: Report from Study
  Country: None (occurrence: US)
  Receive Date: 20200610
  Receipt Date: 20201013
  Transmission Date: 20210113
  Serious: Yes (Hospitalization, Other)
  Sender: FDA-Public Use
  Company Number: US-ABBVIE-20K-163-3377149-00

PATIENT
  Age: 72 Year
  Sex: Female

DRUGS (2)
  1. HUMIRA [Suspect]
     Active Substance: ADALIMUMAB
     Indication: RHEUMATOID ARTHRITIS
     Dosage: CITRATE FREE
     Route: 058
  2. HUMIRA [Suspect]
     Active Substance: ADALIMUMAB
     Dosage: CITRATE FREE
     Route: 058
     Dates: end: 202005

REACTIONS (20)
  - Asthma [Unknown]
  - Facial paralysis [Not Recovered/Not Resolved]
  - Illness [Unknown]
  - Peripheral swelling [Unknown]
  - Pain in extremity [Unknown]
  - Hypertension [Not Recovered/Not Resolved]
  - Leukaemia [Not Recovered/Not Resolved]
  - Lyme disease [Unknown]
  - Sinusitis [Unknown]
  - Sarcoidosis [Not Recovered/Not Resolved]
  - Hospitalisation [Recovered/Resolved]
  - Neurosarcoidosis [Not Recovered/Not Resolved]
  - Joint swelling [Unknown]
  - Herpes zoster [Unknown]
  - Intracardiac mass [Unknown]
  - Intracranial mass [Unknown]
  - Arthralgia [Not Recovered/Not Resolved]
  - Therapeutic product effect incomplete [Unknown]
  - Cerebrovascular accident [Not Recovered/Not Resolved]
  - Injection site pruritus [Not Recovered/Not Resolved]

NARRATIVE: CASE EVENT DATE: 2020
